FAERS Safety Report 7427558-2 (Version None)
Quarter: 2011Q2

REPORT INFORMATION
  Report Type: 
  Country: None (occurrence: None)
  Receive Date: 20110420
  Receipt Date: 20110412
  Transmission Date: 20111010
  Serious: Yes (Hospitalization)
  Sender: FDA-Public Use
  Company Number: GXBR2011US01394

PATIENT
  Sex: Female
  Weight: 63.492 kg

DRUGS (13)
  1. LASIX [Concomitant]
     Indication: CARDIAC FAILURE CONGESTIVE
     Dosage: 20 MG, QD
  2. ASPIRIN [Concomitant]
     Dosage: 81 MG, QD
  3. TOPROL-XL [Concomitant]
     Indication: CARDIAC DISORDER
     Dosage: 50 MG, QD
  4. MONOPRIL [Concomitant]
     Indication: HYPERTENSION
     Dosage: UNK MG, UNK
  5. VITAMIN B6 [Concomitant]
     Dosage: UNK MG, UNK
  6. BETACAROTENE [Concomitant]
     Indication: MACULAR DEGENERATION
     Dosage: UNK MG, UNK
  7. RESTORIL [Concomitant]
     Indication: INSOMNIA
     Dosage: 30 MG, UNK
  8. LUTEIN [Concomitant]
     Indication: MACULAR DEGENERATION
     Dosage: UNK MG, UNK
  9. CALCIUM [Concomitant]
     Dosage: UNK MG, UNK
  10. AMIODARONE HYDROCHLORIDE [Suspect]
     Indication: ARRHYTHMIA
     Dosage: 200 MG, QD
     Route: 048
     Dates: start: 20090601, end: 20100901
  11. KLOR-CON [Concomitant]
     Indication: MINERAL SUPPLEMENTATION
     Dosage: UNK MEQ, UNK
  12. NITROGLYCERIN [Concomitant]
     Indication: CHEST PAIN
     Dosage: UNK MG, UNK
  13. VITAMIN B-12 [Concomitant]
     Dosage: 1000 MG, UNK

REACTIONS (17)
  - SKIN ATROPHY [None]
  - RASH MACULAR [None]
  - CONDITION AGGRAVATED [None]
  - PNEUMONIA [None]
  - CARDIAC FAILURE CONGESTIVE [None]
  - CONTUSION [None]
  - TONGUE DISCOLOURATION [None]
  - DYSPNOEA [None]
  - HEPATIC ENZYME INCREASED [None]
  - SKIN DISCOLOURATION [None]
  - HEADACHE [None]
  - ALOPECIA [None]
  - HYPOTHYROIDISM [None]
  - SKIN DISORDER [None]
  - VISION BLURRED [None]
  - METAMORPHOPSIA [None]
  - ATRIAL FIBRILLATION [None]
